FAERS Safety Report 4445910-4 (Version None)
Quarter: 2004Q3

REPORT INFORMATION
  Report Type: 
  Country: None (occurrence: None)
  Receive Date: 20040903
  Receipt Date: 20040819
  Transmission Date: 20050211
  Serious: Yes (Hospitalization)
  Sender: FDA-Public Use
  Company Number: 04P-163-0271429-00

PATIENT
  Age: 62 Year
  Sex: Female
  Weight: 109.7705 kg

DRUGS (12)
  1. HUMIRA [Suspect]
     Indication: RHEUMATOID ARTHRITIS
     Dosage: 40 MG, 1 IN 2 WK, SUBCUTANEOUS
     Route: 058
     Dates: start: 20040705
  2. CELECOXIB [Concomitant]
  3. HYDROXYCHLOROQUINE PHOSPHATE [Concomitant]
  4. METHOTREXATE [Concomitant]
  5. FOLIC ACID [Concomitant]
  6. LANSOPRAZOLE [Concomitant]
  7. PROPRANOLOL HYDROCHLORIDE [Concomitant]
  8. LORATADINE [Concomitant]
  9. CONJUGATED ESTROGEN [Concomitant]
  10. HYDROCHLOROTHIAZIDE [Concomitant]
  11. POTASSIUM CHLORIDE [Concomitant]
  12. BUDESONIDE [Concomitant]

REACTIONS (10)
  - ABDOMINAL PAIN LOWER [None]
  - BACTERAEMIA [None]
  - CHILLS [None]
  - DIVERTICULITIS [None]
  - FATIGUE [None]
  - NAUSEA [None]
  - POLLAKIURIA [None]
  - PYREXIA [None]
  - URINE ODOUR ABNORMAL [None]
  - VOMITING [None]
